FAERS Safety Report 13030652 (Version 1)
Quarter: 2016Q4

REPORT INFORMATION
  Report Type: Spontaneous
  Country: US (occurrence: US)
  Receive Date: 20161215
  Receipt Date: 20161215
  Transmission Date: 20170207
  Serious: Yes (Hospitalization)
  Sender: FDA-Public Use
  Company Number: US-PFIZER INC-2016566265

PATIENT
  Sex: Female

DRUGS (1)
  1. IBRANCE [Suspect]
     Active Substance: PALBOCICLIB
     Dosage: UNK
     Dates: end: 201610

REACTIONS (4)
  - Prothrombin level decreased [Unknown]
  - Blood fibrinogen decreased [Unknown]
  - Coagulopathy [Unknown]
  - Fibrin D dimer increased [Unknown]
